FAERS Safety Report 21646860 (Version 1)
Quarter: 2022Q4

REPORT INFORMATION
  Report Type: Spontaneous
  Country: FR (occurrence: FR)
  Receive Date: 20221127
  Receipt Date: 20221127
  Transmission Date: 20230112
  Serious: Yes (Hospitalization)
  Sender: FDA-Public Use
  Company Number: None

PATIENT
  Age: 77 Year
  Sex: Male

DRUGS (13)
  1. ATORVASTATIN [Suspect]
     Active Substance: ATORVASTATIN
     Indication: Cardiovascular event prophylaxis
     Dosage: UNIT DOSE : 80 MG  , FREQUENCY TIME : 1 DAY  , DURATION :  33 DAYS
     Dates: start: 20220918, end: 20221025
  2. RAMIPRIL [Suspect]
     Active Substance: RAMIPRIL
     Indication: Cardiovascular event prophylaxis
     Dosage: UNIT DOSE : 2.5 MG  , FREQUENCY TIME :  1 DAY , DURATION : 33 DAYS
     Dates: start: 20220921, end: 20221024
  3. METFORMIN [Suspect]
     Active Substance: METFORMIN HYDROCHLORIDE
     Indication: Type 2 diabetes mellitus
     Dosage: UNIT DOSE : 1000 MG   , FREQUENCY TIME : 8 HOUR  , DURATION : 33 DAYS
     Dates: start: 2020, end: 20221026
  4. ELIQUIS [Suspect]
     Active Substance: APIXABAN
     Indication: Atrial fibrillation
     Dosage: UNIT DOSE : 5 MG  , FREQUENCY TIME : 12 HOUR  , DURATION :  33 DAYS
     Dates: start: 20220921, end: 20221024
  5. JANUVIA [Concomitant]
     Active Substance: SITAGLIPTIN PHOSPHATE
     Indication: Type 2 diabetes mellitus
     Dosage: UNIT DOSE : 100 MG   , FREQUENCY TIME : 1 DAY  , DURATION :  33 DAYS
     Dates: start: 2020, end: 20221026
  6. PANTOPRAZOLE [Concomitant]
     Active Substance: PANTOPRAZOLE
     Indication: Gastrooesophageal reflux disease
     Dosage: UNIT DOSE :  40 MG , FREQUENCY TIME : 1 DAY  , DURATION : 33 DAYS
     Dates: start: 2020
  7. ALLOPURINOL [Concomitant]
     Active Substance: ALLOPURINOL
     Indication: Gout
     Dosage: UNIT DOSE : 100 MG  , FREQUENCY TIME : 1 DAY , DURATION : 33 DAYS
     Dates: start: 2016
  8. BISOPROLOL FUMARATE [Concomitant]
     Active Substance: BISOPROLOL FUMARATE
     Indication: Cardiovascular event prophylaxis
     Dosage: BISOPROLOL (FUMARATE ACIDE DE) , UNIT DOSE : 1.25 MG  , FREQUENCY TIME : 1 DAY  , DURATION :  33 DAY
     Dates: start: 20221101
  9. BISOPROLOL FUMARATE [Concomitant]
     Active Substance: BISOPROLOL FUMARATE
     Dosage: UNIT DOSE : 1.25 MG  , FREQUENCY TIME : 1 DAY  , DURATION :  33 DAYS
     Dates: start: 20220920, end: 20221024
  10. GLICLAZIDE [Concomitant]
     Active Substance: GLICLAZIDE
     Indication: Type 2 diabetes mellitus
     Dosage: UNIT DOSE : 60 MG  , FREQUENCY TIME : 1 DAY  , DURATION : 33 DAYS
     Dates: start: 2020, end: 20221026
  11. LOVENOX [Concomitant]
     Active Substance: ENOXAPARIN SODIUM
     Indication: Thrombosis prophylaxis
     Dosage: UNIT DOSE : 4000 IU  , FREQUENCY TIME : 12 HOUR  , DURATION :  33 DAYS
     Dates: start: 20221012
  12. JARDIANCE [Concomitant]
     Active Substance: EMPAGLIFLOZIN
     Indication: Type 2 diabetes mellitus
     Dosage: UNIT DOSE :10 MG    , FREQUENCY TIME : 1 DAY  , DURATION :  33 DAYS
     Dates: start: 20220920, end: 20221026
  13. CLOPIDOGREL HYDROCHLORIDE [Concomitant]
     Active Substance: CLOPIDOGREL HYDROCHLORIDE
     Indication: Ischaemic heart disease prophylaxis
     Dosage: CLOPIDOGREL (CHLORHYDRATE DE)  ,  UNIT DOSE : 75 MG   , FREQUENCY TIME : 1 DAY  , DURATION :  33 DAY
     Dates: start: 20220918, end: 20221101

REACTIONS (1)
  - Cholestatic liver injury [Recovering/Resolving]

NARRATIVE: CASE EVENT DATE: 20221025
